FAERS Safety Report 15429210 (Version 1)
Quarter: 2018Q3

REPORT INFORMATION
  Report Type: Spontaneous
  Country: US (occurrence: US)
  Receive Date: 20180921
  Receipt Date: 20180921
  Transmission Date: 20181010
  Serious: Yes (Other)
  Sender: FDA-Public Use
  Company Number: None

PATIENT
  Age: 83 Year
  Sex: Female

DRUGS (1)
  1. CIPROFLOXACIN 250MG [Suspect]
     Active Substance: CIPROFLOXACIN
     Indication: CYSTITIS

REACTIONS (10)
  - Headache [None]
  - Arthralgia [None]
  - Muscular weakness [None]
  - Nervousness [None]
  - Gait disturbance [None]
  - Fatigue [None]
  - Insomnia [None]
  - Myalgia [None]
  - Sinus pain [None]
  - Joint swelling [None]
